FAERS Safety Report 5187956-7 (Version None)
Quarter: 2006Q4

REPORT INFORMATION
  Report Type: 
  Country: None (occurrence: None)
  Receive Date: 20061221
  Receipt Date: 20061123
  Transmission Date: 20070319
  Serious: Yes (Congenital Anomaly)
  Sender: FDA-Public Use
  Company Number: GBWYE657427NOV06

PATIENT

DRUGS (3)
  1. ENBREL [Suspect]
     Dosage: UNKNOWN
     Route: 064
  2. PREDNISOLONE [Concomitant]
     Dosage: 7.5MG FREQUENCY UNKNOWN
     Route: 064
  3. METFORMIN [Concomitant]
     Route: 064

REACTIONS (3)
  - ABORTION INDUCED [None]
  - DRUG EXPOSURE DURING PREGNANCY [None]
  - TRISOMY 21 [None]
